FAERS Safety Report 25958373 (Version 1)
Quarter: 2025Q4

REPORT INFORMATION
  Report Type: Spontaneous
  Country: US (occurrence: None)
  Receive Date: 20251024
  Receipt Date: 20251024
  Transmission Date: 20260118
  Serious: Yes (Death)
  Sender: FDA-CTU
  Company Number: None

PATIENT
  Age: 82 Year
  Sex: Male

DRUGS (4)
  1. SIROLIMUS [Suspect]
     Active Substance: SIROLIMUS
     Indication: Renal transplant
     Dosage: FREQUENCY : DAILY;?
     Route: 048
     Dates: start: 20020719, end: 20251018
  2. TACROLIMUS [Suspect]
     Active Substance: TACROLIMUS
     Indication: Renal transplant
     Dosage: OTHER FREQUENCY : 3 Q12H;?
     Route: 048
     Dates: start: 20020719, end: 20251018
  3. SIROLIMUS [Concomitant]
     Active Substance: SIROLIMUS
     Dates: start: 20020719, end: 20251019
  4. TACROLIMUS [Concomitant]
     Active Substance: TACROLIMUS
     Dates: start: 20020719, end: 20251019

REACTIONS (1)
  - Death [None]

NARRATIVE: CASE EVENT DATE: 20251018
